FAERS Safety Report 9493771 (Version 3)
Quarter: 2013Q4

REPORT INFORMATION
  Report Type: Spontaneous
  Country: US (occurrence: US)
  Receive Date: 20130902
  Receipt Date: 20131104
  Transmission Date: 20140711
  Serious: No
  Sender: FDA-Public Use
  Company Number: US-009507513-1308USA005127

PATIENT
  Sex: 0
  Weight: 126.8 kg

DRUGS (2)
  1. NEXPLANON [Suspect]
     Dosage: 1 STANDARD PACKAGE OF PF APPLI OF 1
     Route: 059
     Dates: start: 20130731, end: 20130731
  2. NEXPLANON [Suspect]
     Dosage: UNK
     Route: 059
     Dates: start: 20130731

REACTIONS (4)
  - Device difficult to use [Recovered/Resolved]
  - Product quality issue [Unknown]
  - No adverse event [Unknown]
  - Device expulsion [Unknown]
